FAERS Safety Report 7881988-3 (Version None)
Quarter: 2011Q4

REPORT INFORMATION
  Report Type: 
  Country: None (occurrence: None)
  Receive Date: 20111101
  Receipt Date: 20110606
  Transmission Date: 20120403
  Serious: Yes (Other)
  Sender: FDA-Public Use
  Company Number: US-AMGEN-USASP2011029207

PATIENT
  Age: 61 Year
  Sex: Female

DRUGS (4)
  1. ENBREL [Suspect]
     Indication: RHEUMATOID ARTHRITIS
     Dosage: 50 MG, QWK
     Dates: start: 20110101, end: 20110501
  2. METHOTREXATE [Concomitant]
  3. PLAQUENIL [Concomitant]
  4. PREDNISONE [Concomitant]

REACTIONS (1)
  - B-CELL LYMPHOMA STAGE II [None]
